FAERS Safety Report 16419663 (Version 1)
Quarter: 2019Q2

REPORT INFORMATION
  Report Type: Spontaneous
  Country: JP (occurrence: JP)
  Receive Date: 20190612
  Receipt Date: 20190612
  Transmission Date: 20190711
  Serious: Yes (Other)
  Sender: FDA-Public Use
  Company Number: JP-APOTEX-2019AP016235

PATIENT

DRUGS (2)
  1. LANSOPRAZOLE. [Suspect]
     Active Substance: LANSOPRAZOLE
     Indication: PRODUCT USED FOR UNKNOWN INDICATION
     Dosage: UNK
     Route: 048
  2. PAXIL [Suspect]
     Active Substance: PAROXETINE HYDROCHLORIDE
     Indication: DEPRESSED MOOD
     Dosage: UNK
     Route: 048
     Dates: start: 2006, end: 2014

REACTIONS (4)
  - Spinal compression fracture [Unknown]
  - Osteoporosis [Unknown]
  - Rib fracture [Unknown]
  - Back pain [Unknown]

NARRATIVE: CASE EVENT DATE: 2017
